FAERS Safety Report 25300295 (Version 1)
Quarter: 2025Q2

REPORT INFORMATION
  Report Type: Spontaneous
  Country: US (occurrence: US)
  Receive Date: 20250512
  Receipt Date: 20250512
  Transmission Date: 20250717
  Serious: No
  Sender: MYLAN
  Company Number: US-MYLANLABS-2025M1037498

PATIENT
  Sex: Female

DRUGS (4)
  1. TOBRAMYCIN [Suspect]
     Active Substance: TOBRAMYCIN
     Indication: Product used for unknown indication
  2. TOBRAMYCIN [Suspect]
     Active Substance: TOBRAMYCIN
     Route: 065
  3. TOBRAMYCIN [Suspect]
     Active Substance: TOBRAMYCIN
     Route: 065
  4. TOBRAMYCIN [Suspect]
     Active Substance: TOBRAMYCIN

REACTIONS (1)
  - Product use in unapproved indication [Unknown]
